FAERS Safety Report 15337387 (Version 1)
Quarter: 2018Q3

REPORT INFORMATION
  Report Type: Report from Study
  Country: CN (occurrence: CN)
  Receive Date: 20180831
  Receipt Date: 20180831
  Transmission Date: 20181010
  Serious: Yes (Other)
  Sender: FDA-Public Use
  Company Number: CN-ROCHE-2175102

PATIENT

DRUGS (4)
  1. IRINOTECAN [Suspect]
     Active Substance: IRINOTECAN
     Indication: COLORECTAL CANCER METASTATIC
     Dosage: OVER 30 TO 90 MINUTES ON DAY 1 AND DAY 8
     Route: 041
  2. CAPECITABINE. [Suspect]
     Active Substance: CAPECITABINE
     Indication: COLORECTAL CANCER METASTATIC
     Route: 048
  3. ATROPINE. [Concomitant]
     Active Substance: ATROPINE
     Indication: PROPHYLAXIS
     Dosage: BEFORE THE START OF CYCLE 2
     Route: 065
  4. TROPISETRON [Concomitant]
     Active Substance: TROPISETRON
     Indication: PROPHYLAXIS
     Route: 042

REACTIONS (13)
  - White blood cell count decreased [Unknown]
  - Cholinergic syndrome [Recovered/Resolved]
  - Alopecia [Unknown]
  - Rash [Unknown]
  - Mucosal inflammation [Unknown]
  - Gastrointestinal disorder [Recovered/Resolved]
  - Asthenia [Unknown]
  - Hepatic function abnormal [Unknown]
  - Palmar-plantar erythrodysaesthesia syndrome [Recovered/Resolved]
  - Platelet count decreased [Unknown]
  - Diarrhoea [Recovering/Resolving]
  - Anaemia [Unknown]
  - Neutrophil count decreased [Unknown]
